FAERS Safety Report 4555324-4 (Version None)
Quarter: 2005Q1

REPORT INFORMATION
  Report Type: 
  Country: None (occurrence: None)
  Receive Date: 20041228
  Receipt Date: 20041007
  Transmission Date: 20050727
  Serious: Yes (Hospitalization)
  Sender: FDA-Public Use
  Company Number: 002869

PATIENT
  Age: 39 Year
  Sex: Female
  Weight: 49.9 kg

DRUGS (1)
  1. SEASONALE [Suspect]
     Indication: ENDOMETRIOSIS
     Dosage: 1.00 TABLET, QD, ORAL
     Route: 048
     Dates: start: 20040201, end: 20040922

REACTIONS (6)
  - BACK PAIN [None]
  - DYSPNOEA [None]
  - DYSPNOEA EXERTIONAL [None]
  - PLEURITIC PAIN [None]
  - PULMONARY EMBOLISM [None]
  - TACHYCARDIA [None]
